FAERS Safety Report 4513235-4 (Version None)
Quarter: 2004Q4

REPORT INFORMATION
  Report Type: 
  Country: None (occurrence: None)
  Receive Date: 20041130
  Receipt Date: 20041118
  Transmission Date: 20050328
  Serious: Yes (Hospitalization)
  Sender: FDA-Public Use
  Company Number: SE-MERCK-0411SWE00036

PATIENT
  Age: 63 Year
  Sex: Female

DRUGS (2)
  1. VIOXX [Suspect]
     Indication: ARTHRITIS
     Route: 048
     Dates: start: 20030523, end: 20030527
  2. METOPROLOL TARTRATE [Concomitant]
     Route: 065

REACTIONS (5)
  - ANGINA PECTORIS [None]
  - ELECTROCARDIOGRAM ST SEGMENT DEPRESSION [None]
  - EPILEPSY [None]
  - MYOCARDIAL INFARCTION [None]
  - MYOCARDIAL ISCHAEMIA [None]
